FAERS Safety Report 6435616-4 (Version None)
Quarter: 2009Q4

REPORT INFORMATION
  Report Type: 
  Country: None (occurrence: None)
  Receive Date: 20091111
  Receipt Date: 20091106
  Transmission Date: 20100525
  Serious: Yes (Hospitalization, Congenital Anomaly)
  Sender: FDA-Public Use
  Company Number: DE-WYE-G04715209

PATIENT
  Sex: Female
  Weight: 2.65 kg

DRUGS (2)
  1. TREVILOR RETARD [Suspect]
     Indication: DEPRESSION
     Dosage: 150 MG, FREQUENCY UNKNOWN
     Route: 064
     Dates: end: 20090101
  2. EFFORTIL [Concomitant]
     Indication: HYPOTENSION
     Dosage: UNKNOWN
     Route: 064

REACTIONS (4)
  - BRADYCARDIA NEONATAL [None]
  - DRUG EXPOSURE DURING PREGNANCY [None]
  - FEEDING DISORDER NEONATAL [None]
  - HYPOTONIA NEONATAL [None]
